FAERS Safety Report 5621561-0 (Version None)
Quarter: 2008Q1

REPORT INFORMATION
  Report Type: 
  Country: None (occurrence: None)
  Receive Date: 20080211
  Receipt Date: 20080206
  Transmission Date: 20080703
  Serious: Yes (Hospitalization)
  Sender: FDA-Public Use
  Company Number: CA-ASTRAZENECA-2008UW02562

PATIENT
  Sex: Female

DRUGS (4)
  1. ZOLADEX [Suspect]
     Route: 058
     Dates: start: 20050401
  2. TAMOXIFEN [Concomitant]
     Route: 048
     Dates: start: 20050701
  3. ALBUTEROL [Concomitant]
     Route: 055
  4. CORTICOSTEROIDS [Concomitant]

REACTIONS (5)
  - ASTHMA [None]
  - CHEST DISCOMFORT [None]
  - DYSPNOEA [None]
  - HEART RATE DECREASED [None]
  - HEART RATE IRREGULAR [None]
